FAERS Safety Report 13167607 (Version 1)
Quarter: 2017Q1

REPORT INFORMATION
  Report Type: Report from Study
  Country: US (occurrence: US)
  Receive Date: 20170131
  Receipt Date: 20170131
  Transmission Date: 20170428
  Serious: Yes (Other)
  Sender: FDA-Public Use
  Company Number: US-AMGEN-USASL2016177908

PATIENT
  Age: 53 Year
  Sex: Female

DRUGS (2)
  1. KYPROLIS [Suspect]
     Active Substance: CARFILZOMIB
     Indication: PLASMA CELL MYELOMA
     Dosage: UNK, DAY 1,8,15 EVERY 28 DAYS
     Route: 065
  2. KYPROLIS [Suspect]
     Active Substance: CARFILZOMIB
     Dosage: UNK,1 DAY EVERY OTHER WEEK
     Route: 065

REACTIONS (7)
  - Hypertension [Unknown]
  - Back pain [Unknown]
  - Pain in jaw [Unknown]
  - Drug dose omission [Unknown]
  - Headache [Unknown]
  - Plasma cell myeloma [Unknown]
  - Insomnia [Recovering/Resolving]
